FAERS Safety Report 4712418-8 (Version None)
Quarter: 2005Q3

REPORT INFORMATION
  Report Type: 
  Country: None (occurrence: None)
  Receive Date: 20050711
  Receipt Date: 20050627
  Transmission Date: 20060218
  Serious: Yes (Other)
  Sender: FDA-Public Use
  Company Number: 202063

PATIENT
  Age: 45 Year
  Sex: Female
  Weight: 175 kg

DRUGS (6)
  1. AVONEX [Suspect]
     Indication: MULTIPLE SCLEROSIS
     Dosage: 30 UG;QW; IM
     Route: 030
     Dates: start: 20030101, end: 20040101
  2. AVONEX [Suspect]
     Indication: MULTIPLE SCLEROSIS
     Dosage: 30 UG;QW; IM
     Route: 030
     Dates: start: 20030101, end: 20040101
  3. ALBUTEROL [Concomitant]
  4. VIOXX [Concomitant]
  5. AMITRIPTYLINE HCL [Concomitant]
  6. NASACORT AQ [Concomitant]

REACTIONS (1)
  - BREAST CANCER [None]
